FAERS Safety Report 13513263 (Version 1)
Quarter: 2017Q2

REPORT INFORMATION
  Report Type: Spontaneous
  Country: US (occurrence: US)
  Receive Date: 20170504
  Receipt Date: 20170504
  Transmission Date: 20170830
  Serious: Yes (Hospitalization)
  Sender: FDA-Public Use
  Company Number: None

PATIENT
  Age: 76 Year
  Sex: Female
  Weight: 77 kg

DRUGS (10)
  1. MVI [Concomitant]
     Active Substance: VITAMINS
  2. VITAMIN E [Concomitant]
     Active Substance: .ALPHA.-TOCOPHEROL
  3. VISIPAQUE [Suspect]
     Active Substance: IODIXANOL
     Indication: SCAN WITH CONTRAST
     Route: 022
  4. ALBUTEROL. [Concomitant]
     Active Substance: ALBUTEROL
  5. ECOTRIN [Concomitant]
     Active Substance: ASPIRIN
  6. MELATONIN [Concomitant]
     Active Substance: MELATONIN
  7. CA CARB VIT D [Concomitant]
  8. DIOVAN [Concomitant]
     Active Substance: VALSARTAN
  9. TESSALO [Concomitant]
  10. CRESTOR [Concomitant]
     Active Substance: ROSUVASTATIN CALCIUM

REACTIONS (1)
  - Rash macular [None]

NARRATIVE: CASE EVENT DATE: 20161002
